FAERS Safety Report 10008475 (Version 2)
Quarter: 2014Q1

REPORT INFORMATION
  Report Type: Spontaneous
  Country: FR (occurrence: FR)
  Receive Date: 20140313
  Receipt Date: 20140327
  Transmission Date: 20141002
  Serious: Yes (Hospitalization)
  Sender: FDA-Public Use
  Company Number: FR-MERCK-1403FRA004298

PATIENT
  Age: 91 Year
  Sex: Male

DRUGS (10)
  1. AERIUS [Suspect]
     Dosage: 1 DF, QD
     Route: 048
     Dates: end: 2014
  2. SIMVASTATIN [Suspect]
     Route: 065
  3. DEDROGYL [Suspect]
     Dosage: 15 MG/100 ML
     Route: 048
     Dates: end: 201402
  4. NATISPRAY [Suspect]
     Dosage: 0.30 DF, BID
     Route: 060
     Dates: end: 201402
  5. KARDEGIC [Suspect]
     Indication: PROPHYLAXIS
     Dosage: 75 MG, QD
     Route: 048
  6. CARDENSIEL [Suspect]
     Indication: PROPHYLAXIS
     Dosage: 5 MG, BID
     Route: 048
  7. EUPANTOL [Suspect]
     Dosage: 20 MG, QD
     Route: 048
     Dates: end: 20140212
  8. CAPTOPRIL [Suspect]
     Indication: PROPHYLAXIS
     Dosage: 25 MG, BID
     Route: 048
     Dates: end: 201402
  9. METFOMIN HYDROCHLORIDE [Suspect]
     Indication: DIABETES MELLITUS
     Dosage: 850 MG, BID
     Route: 048
     Dates: end: 20140210
  10. LASILIX [Suspect]
     Dosage: 1.5 DF, QD
     Route: 048
     Dates: end: 201402

REACTIONS (3)
  - Diarrhoea [Recovered/Resolved]
  - Colitis microscopic [Unknown]
  - Weight decreased [Unknown]
